FAERS Safety Report 8131136-X (Version None)
Quarter: 2012Q1

REPORT INFORMATION
  Report Type: 
  Country: None (occurrence: None)
  Receive Date: 20120209
  Receipt Date: 20120209
  Transmission Date: 20120608
  Serious: Yes (Hospitalization)
  Sender: FDA-Public Use
  Company Number: None

PATIENT
  Age: 48 Year
  Sex: Female
  Weight: 82.5547 kg

DRUGS (2)
  1. PEGASYS [Suspect]
     Indication: HEPATITIS C
     Dosage: 180MCG Q WEEK SUBQ
     Route: 058
  2. RIBASPHERE [Suspect]
     Indication: HEPATITIS C
     Dosage: 600MG 1 BID

REACTIONS (4)
  - GAIT DISTURBANCE [None]
  - CEREBRAL HAEMORRHAGE [None]
  - PNEUMONIA [None]
  - COMA [None]
